FAERS Safety Report 18442320 (Version 1)
Quarter: 2020Q4

REPORT INFORMATION
  Report Type: Spontaneous
  Country: FR (occurrence: FR)
  Receive Date: 20201029
  Receipt Date: 20201029
  Transmission Date: 20210114
  Serious: Yes (Death)
  Sender: FDA-Public Use
  Company Number: FR-TEIKOKU PHARMA USA, INC.-FR-2020TEI000083

PATIENT
  Sex: Female

DRUGS (2)
  1. DOCETAXEL INJECTION (NON-ALCOHOL FORMULA) [Suspect]
     Active Substance: DOCETAXEL
     Indication: BREAST CANCER
     Dosage: 75 MG/M2, BID FOR 14 DAYS, Q3 WEEKS FOR 6 CYCLES
     Route: 042
  2. CAPECITABINE. [Suspect]
     Active Substance: CAPECITABINE
     Indication: BREAST CANCER
     Dosage: 825 MG/M2, BID; FOR 14 DAYS, Q 3 WEEKS FOR 6 CYCLES
     Route: 048

REACTIONS (1)
  - Toxicity to various agents [Fatal]
